FAERS Safety Report 9954540 (Version 2)
Quarter: 2014Q1

REPORT INFORMATION
  Report Type: Spontaneous
  Country: US (occurrence: US)
  Receive Date: 20140304
  Receipt Date: 20140318
  Transmission Date: 20141002
  Serious: Yes (Hospitalization, Other)
  Sender: FDA-Public Use
  Company Number: US-AMGEN-USASP2014006579

PATIENT
  Age: 58 Year
  Sex: Female

DRUGS (10)
  1. ENBREL [Suspect]
     Indication: RHEUMATOID ARTHRITIS
     Dosage: 50 MG, QWK
     Route: 065
     Dates: start: 20121031, end: 20140114
  2. GABAPENTIN [Concomitant]
     Dosage: 300 MG, THREE TIMES A DAY
  3. ZYRTEC [Concomitant]
     Dosage: 10 MG, DAILY
  4. LISINOPRIL [Concomitant]
     Dosage: 20 MG, DAILY
  5. FOLIC ACID [Concomitant]
     Dosage: 1 MG, DAILY
  6. PAROXETINE [Concomitant]
     Dosage: 20 MG, DAILY
  7. PLAQUENIL                          /00072603/ [Concomitant]
     Dosage: 200 MG, 2 TABLETS DAILY
  8. METHOTREXATE [Concomitant]
     Dosage: 2.5 MG 9 TABLETS BY MOUTH WEEKLY GIVEN ON FRIDAYS
     Route: 048
  9. TRAMADOL [Concomitant]
     Indication: PAIN
     Dosage: 50 MG, Q 6 HOURS AS NEEDED
  10. MUCINEX [Concomitant]
     Indication: COUGH
     Dosage: 600 MG, TWICE DAILY AS NEEDED

REACTIONS (10)
  - Lymphadenopathy mediastinal [Unknown]
  - Hepatic cyst [Unknown]
  - Atelectasis [Unknown]
  - Hypertension [Unknown]
  - Musculoskeletal chest pain [Unknown]
  - Osteoarthritis [Unknown]
  - Palpitations [Unknown]
  - Pneumonia [Unknown]
  - Spinal disorder [Unknown]
  - Influenza [Not Recovered/Not Resolved]
